FAERS Safety Report 8538456-5 (Version None)
Quarter: 2012Q3

REPORT INFORMATION
  Report Type: 
  Country: None (occurrence: None)
  Receive Date: 20120712
  Receipt Date: 20110705
  Transmission Date: 20120928
  Serious: Yes (Hospitalization)
  Sender: FDA-Public Use
  Company Number: PYR-11-15

PATIENT
  Age: 3 Year
  Sex: Male

DRUGS (5)
  1. PYRAZINAMIDE [Suspect]
     Indication: TUBERCULOSIS
     Dosage: 25MG/KG DAY
  2. ISONIAZID [Concomitant]
  3. ETHAMBUTOL HYDROCHLORIDE [Concomitant]
  4. RIFAMPICIN [Concomitant]
  5. ETHIONAMIDE [Concomitant]

REACTIONS (4)
  - ABDOMINAL DISTENSION [None]
  - CHYLOTHORAX [None]
  - ASCITES [None]
  - IMMUNE RECONSTITUTION SYNDROME [None]
